FAERS Safety Report 4602078-9 (Version None)
Quarter: 2005Q1

REPORT INFORMATION
  Report Type: 
  Country: None (occurrence: None)
  Receive Date: 20050131
  Receipt Date: 20041123
  Transmission Date: 20050727
  Serious: No
  Sender: FDA-Public Use
  Company Number: 200417640US

PATIENT
  Sex: Male

DRUGS (3)
  1. KETEK [Suspect]
     Indication: BRONCHITIS ACUTE
     Dosage: 400 (2 TABLETS) MG QD PO
     Route: 048
     Dates: start: 20040915, end: 20040920
  2. KETEK [Suspect]
     Indication: CHRONIC OBSTRUCTIVE AIRWAYS DISEASE EXACERBATED
     Dosage: 400 (2 TABLETS) MG QD PO
     Route: 048
     Dates: start: 20040915, end: 20040920
  3. PREDNISONE [Suspect]

REACTIONS (1)
  - VISION BLURRED [None]
